FAERS Safety Report 4998394-1 (Version None)
Quarter: 2006Q2

REPORT INFORMATION
  Report Type: 
  Country: None (occurrence: None)
  Receive Date: 20060508
  Receipt Date: 20060421
  Transmission Date: 20061013
  Serious: Yes (Other)
  Sender: FDA-Public Use
  Company Number: GXKR2006ES02523

PATIENT
  Age: 66 Year
  Sex: Female

DRUGS (2)
  1. CEFAZOLIN [Suspect]
     Indication: KNEE ARTHROPLASTY
     Dosage: 500 MG/12H, INTRAMUSCULAR
     Route: 030
  2. DIPYRONE TAB [Concomitant]

REACTIONS (3)
  - DERMATITIS EXFOLIATIVE [None]
  - SKIN TEST POSITIVE [None]
  - TYPE IV HYPERSENSITIVITY REACTION [None]
